FAERS Safety Report 25599365 (Version 1)
Quarter: 2025Q3

REPORT INFORMATION
  Report Type: Other
  Country: CA (occurrence: CA)
  Receive Date: 20250724
  Receipt Date: 20250724
  Transmission Date: 20251021
  Serious: Yes (Life-Threatening, Hospitalization, Other)
  Sender: APOTEX
  Company Number: CA-PGRTD-001129981

PATIENT
  Age: 2 Year
  Sex: Female
  Weight: 10.8 kg

DRUGS (19)
  1. MELPHALAN [Suspect]
     Active Substance: MELPHALAN
     Indication: Bone marrow transplant
     Route: 042
  2. CARBOPLATIN [Suspect]
     Active Substance: CARBOPLATIN
     Indication: Bone marrow transplant
     Route: 042
  3. ETOPOSIDE [Suspect]
     Active Substance: ETOPOSIDE
     Indication: Bone marrow transplant
     Route: 042
  4. ACETAMINOPHEN [Concomitant]
     Active Substance: ACETAMINOPHEN
     Route: 065
  5. ACYCLOVIR [Concomitant]
     Active Substance: ACYCLOVIR
     Route: 065
  6. CICLESONIDE [Concomitant]
     Active Substance: CICLESONIDE
     Route: 065
  7. DEXAMETHASONE [Concomitant]
     Active Substance: DEXAMETHASONE
     Route: 065
  8. FAMOTIDINE [Concomitant]
     Active Substance: FAMOTIDINE
     Route: 065
  9. FLUCONAZOLE [Concomitant]
     Active Substance: FLUCONAZOLE
     Route: 065
  10. OLANZAPINE [Concomitant]
     Active Substance: OLANZAPINE
     Route: 065
  11. ONDANSETRON [Concomitant]
     Active Substance: ONDANSETRON
     Route: 065
  12. SULFAMETHOXAZOLE AND TRIMETHOPRIM [Concomitant]
     Active Substance: SULFAMETHOXAZOLE\TRIMETHOPRIM
     Route: 065
  13. VANCOMYCIN [Concomitant]
     Active Substance: VANCOMYCIN
     Route: 065
  14. ATROPINE [Concomitant]
     Active Substance: ATROPINE
     Route: 065
  15. CEFTAZIDIME [Concomitant]
     Active Substance: CEFTAZIDIME
     Route: 065
  16. CHOLECALCIFEROL [Concomitant]
     Active Substance: CHOLECALCIFEROL
     Route: 065
  17. POLYETHYLENE GLYCOLS [Concomitant]
     Active Substance: POLYETHYLENE GLYCOLS
     Route: 065
  18. TRANEXAMIC ACID [Concomitant]
     Active Substance: TRANEXAMIC ACID
     Route: 065
  19. URSODIOL [Concomitant]
     Active Substance: URSODIOL
     Route: 065

REACTIONS (7)
  - Aplastic anaemia [Recovered/Resolved]
  - Mucosal inflammation [Recovered/Resolved]
  - Acute kidney injury [Recovered/Resolved]
  - Parenteral nutrition [Recovered/Resolved]
  - Platelet transfusion [Recovered/Resolved]
  - Red blood cell transfusion [Recovered/Resolved]
  - Diarrhoea [Recovered/Resolved]
